FAERS Safety Report 19641089 (Version 1)
Quarter: 2021Q3

REPORT INFORMATION
  Report Type: Spontaneous
  Country: US (occurrence: US)
  Receive Date: 20210730
  Receipt Date: 20210730
  Transmission Date: 20211014
  Serious: No
  Sender: FDA-Public Use
  Company Number: US-BEH-2021134455

PATIENT
  Sex: Male

DRUGS (13)
  1. MAGNESIUM [Concomitant]
     Active Substance: MAGNESIUM
  2. CLARITHROMYCIN. [Concomitant]
     Active Substance: CLARITHROMYCIN
  3. LANSOPRAZOLE. [Concomitant]
     Active Substance: LANSOPRAZOLE
  4. HIZENTRA [Suspect]
     Active Substance: HUMAN IMMUNOGLOBULIN G
     Indication: CHRONIC INFLAMMATORY DEMYELINATING POLYRADICULONEUROPATHY
     Dosage: 18 GRAM (90ML), QW
     Route: 058
     Dates: start: 2018
  5. ASPIRIN 81 [Concomitant]
     Active Substance: ASPIRIN
  6. QUERCETIN [Concomitant]
     Active Substance: QUERCETIN
  7. TURMERIC [CURCUMA LONGA RHIZOME] [Concomitant]
     Active Substance: HERBALS\TURMERIC
  8. CYSTINE [Concomitant]
     Active Substance: CYSTINE
  9. AMOXICILLIN. [Concomitant]
     Active Substance: AMOXICILLIN
  10. ZINC. [Concomitant]
     Active Substance: ZINC
  11. PROBIOTICS NOS [Concomitant]
     Active Substance: PROBIOTICS NOS
  12. MIDODRINE HCL [Concomitant]
     Active Substance: MIDODRINE HYDROCHLORIDE
  13. OMEGA?3 FATTY ACIDS [Concomitant]
     Active Substance: OMEGA-3 FATTY ACIDS

REACTIONS (5)
  - Infusion site nodule [Recovered/Resolved]
  - Fatigue [Recovered/Resolved]
  - Tenderness [Recovered/Resolved]
  - Headache [Recovered/Resolved]
  - Infusion site scar [Recovered/Resolved]
